FAERS Safety Report 9282087 (Version 1)
Quarter: 2013Q2

REPORT INFORMATION
  Report Type: Spontaneous
  Country: US (occurrence: None)
  Receive Date: 20130508
  Receipt Date: 20130508
  Transmission Date: 20140414
  Serious: Yes (Other)
  Sender: FDA-Public Use
  Company Number: None

PATIENT
  Age: 68 Year
  Sex: Female
  Weight: 70.31 kg

DRUGS (1)
  1. TRAMADOL [Suspect]

REACTIONS (6)
  - Constipation [None]
  - Tremor [None]
  - Stress [None]
  - Syncope [None]
  - Convulsion [None]
  - Asthma [None]
